FAERS Safety Report 7998996-4 (Version None)
Quarter: 2011Q4

REPORT INFORMATION
  Report Type: 
  Country: None (occurrence: None)
  Receive Date: 20111221
  Receipt Date: 20111213
  Transmission Date: 20120403
  Serious: Yes (Other)
  Sender: FDA-Public Use
  Company Number: FR-JNJFOC-20111207861

PATIENT
  Age: 82 Year
  Sex: Female

DRUGS (2)
  1. ASPIRIN [Concomitant]
     Indication: AORTIC ANEURYSM
  2. STELARA [Suspect]
     Indication: PSORIASIS
     Route: 058

REACTIONS (1)
  - ARTHRALGIA [None]
